FAERS Safety Report 18441028 (Version 1)
Quarter: 2020Q4

REPORT INFORMATION
  Report Type: Spontaneous
  Country: CA (occurrence: CA)
  Receive Date: 20201029
  Receipt Date: 20201029
  Transmission Date: 20210114
  Serious: Yes (Other)
  Sender: FDA-Public Use
  Company Number: CA-PFIZER INC-2020418967

PATIENT
  Age: 57 Year
  Sex: Female

DRUGS (7)
  1. GEMZAR [Concomitant]
     Active Substance: GEMCITABINE HYDROCHLORIDE
  2. SYMBICORT [Concomitant]
     Active Substance: BUDESONIDE\FORMOTEROL FUMARATE DIHYDRATE
  3. ONDANSETRON [Concomitant]
     Active Substance: ONDANSETRON
  4. SALBUTAMOL [Concomitant]
     Active Substance: ALBUTEROL
  5. PROCHLORPERAZINE. [Concomitant]
     Active Substance: PROCHLORPERAZINE
  6. DOCETAXEL. [Suspect]
     Active Substance: DOCETAXEL
     Route: 065
  7. MORPHINE [Concomitant]
     Active Substance: MORPHINE

REACTIONS (1)
  - Infusion related reaction [Recovered/Resolved]
